FAERS Safety Report 7215235-2 (Version None)
Quarter: 2011Q1

REPORT INFORMATION
  Report Type: 
  Country: None (occurrence: None)
  Receive Date: 20110107
  Receipt Date: 20101224
  Transmission Date: 20110831
  Serious: Yes (Death, Other)
  Sender: FDA-Public Use
  Company Number: JP-GENZYME-THYM-1002223

PATIENT

DRUGS (20)
  1. AMPHOTERICIN B [Concomitant]
     Indication: ANTIFUNGAL PROPHYLAXIS
     Dosage: UNK
     Dates: start: 20101001, end: 20101003
  2. MICAFUNGIN SODIUM [Concomitant]
     Indication: ANTIFUNGAL PROPHYLAXIS
     Dosage: UNK
     Dates: start: 20100924, end: 20100927
  3. DORIPENEM HYDRATE [Concomitant]
     Indication: ANTIBIOTIC PROPHYLAXIS
     Dosage: UNK
     Dates: start: 20100925, end: 20100928
  4. THYMOGLOBULIN [Suspect]
     Dosage: 50 MG, QD
     Dates: start: 20101001, end: 20101001
  5. TACROLIMUS [Concomitant]
     Indication: GRAFT VERSUS HOST DISEASE
     Dosage: UNK
     Dates: end: 20100927
  6. FLUDARABINE PHOSPHATE [Concomitant]
     Indication: STEM CELL TRANSPLANT
     Dosage: UNK
     Dates: start: 20100930, end: 20101001
  7. THYMOGLOBULIN [Suspect]
     Dosage: 50 MG, QD
     Dates: start: 20100926, end: 20100926
  8. INSULIN HUMAN [Concomitant]
     Indication: HYPERGLYCAEMIA
     Dosage: UNK
     Dates: start: 20100924, end: 20100927
  9. FILGRASTIM [Concomitant]
     Indication: NEUTROPHIL COUNT DECREASED
     Dosage: UNK
     Dates: start: 20100924, end: 20100928
  10. MEROPENEM TRIHYDRATE [Concomitant]
     Indication: ANTIBIOTIC PROPHYLAXIS
     Dosage: UNK
     Dates: start: 20100924, end: 20100924
  11. HYDROCORTISONE SODIUM SUCCINATE [Concomitant]
     Indication: PROPHYLAXIS
     Dosage: UNK
     Dates: start: 20100924, end: 20100924
  12. OMEPRAZOLE [Concomitant]
     Indication: GASTRITIS
     Dosage: UNK
     Dates: start: 20100924, end: 20100927
  13. CHLORPHENIRAMINE [Concomitant]
     Indication: PREMEDICATION
     Dosage: UNK
     Dates: start: 20100924, end: 20100929
  14. DOPMIN [Concomitant]
     Indication: CIRCULATORY COLLAPSE
     Dosage: UNK
     Dates: start: 20100927, end: 20100927
  15. ENTECAVIR [Concomitant]
     Indication: HEPATITIS
     Dosage: UNK
     Dates: start: 20100930, end: 20100930
  16. METHYLPREDNISOLONE SODIUM SUCCINATE [Concomitant]
     Indication: GRAFT VERSUS HOST DISEASE
     Dosage: UNK
     Dates: start: 20100924, end: 20100925
  17. ACYCLOVIR [Concomitant]
     Indication: ANTIVIRAL PROPHYLAXIS
     Dosage: UNK
     Dates: start: 20100924, end: 20100926
  18. THYMOGLOBULIN [Suspect]
     Indication: GRAFT VERSUS HOST DISEASE
     Dosage: 50 MG, QD
     Dates: start: 20100924, end: 20100924
  19. THROMBOMODULIN ALFA [Concomitant]
     Indication: DISSEMINATED INTRAVASCULAR COAGULATION
     Dosage: UNK
     Dates: start: 20100924, end: 20100927
  20. VORICONAZOLE [Concomitant]
     Indication: ANTIFUNGAL PROPHYLAXIS
     Dosage: UNK
     Dates: start: 20100924, end: 20100925

REACTIONS (4)
  - SEPTIC SHOCK [None]
  - LYMPHOCYTIC LEUKAEMIA [None]
  - TRANSPLANT REJECTION [None]
  - STAPHYLOCOCCAL SEPSIS [None]
